FAERS Safety Report 13905977 (Version 1)
Quarter: 2017Q3

REPORT INFORMATION
  Report Type: Spontaneous
  Country: US (occurrence: None)
  Receive Date: 20170822
  Receipt Date: 20170822
  Transmission Date: 20171127
  Serious: Yes (Hospitalization)
  Sender: FDA-Public Use
  Company Number: None

PATIENT
  Age: 80 Year
  Sex: Male

DRUGS (1)
  1. ASPIRIN. [Suspect]
     Active Substance: ASPIRIN
     Indication: CEREBROVASCULAR ACCIDENT PROPHYLAXIS
     Route: 048
     Dates: start: 20140206, end: 20170710

REACTIONS (13)
  - Haemorrhoids [None]
  - Contusion [None]
  - Duodenal ulcer haemorrhage [None]
  - Blood creatinine increased [None]
  - Diverticulum intestinal [None]
  - Gastric haemorrhage [None]
  - Tachycardia [None]
  - Iron deficiency anaemia [None]
  - Gastrointestinal arteriovenous malformation [None]
  - Scratch [None]
  - Upper gastrointestinal haemorrhage [None]
  - Oesophageal intramural haematoma [None]
  - Increased tendency to bruise [None]

NARRATIVE: CASE EVENT DATE: 20170719
